FAERS Safety Report 20306479 (Version 1)
Quarter: 2022Q1

REPORT INFORMATION
  Report Type: Spontaneous
  Country: US (occurrence: None)
  Receive Date: 20220106
  Receipt Date: 20220106
  Transmission Date: 20220423
  Serious: Yes (unspecified)
  Sender: FDA-Public Use
  Company Number: None

PATIENT
  Age: 58 Year
  Sex: Female
  Weight: 94.8 kg

DRUGS (3)
  1. LUMASON [Suspect]
     Active Substance: SULFUR HEXAFLUORIDE
     Indication: Imaging procedure
     Dosage: OTHER FREQUENCY : ONCE;?
     Route: 040
     Dates: start: 20211227, end: 20211227
  2. ondansetron 4 mg/2 mL injection IV [Concomitant]
     Dates: start: 20211227, end: 20211227
  3. diphenhydramine 50 mg/mL injection IV [Concomitant]
     Dates: start: 20211227, end: 20211227

REACTIONS (7)
  - Contrast media allergy [None]
  - Headache [None]
  - Nausea [None]
  - Vomiting [None]
  - Oxygen saturation decreased [None]
  - Blood pressure decreased [None]
  - Heart rate increased [None]

NARRATIVE: CASE EVENT DATE: 20211227
